FAERS Safety Report 13515810 (Version 1)
Quarter: 2017Q2

REPORT INFORMATION
  Report Type: Spontaneous
  Country: SI (occurrence: SI)
  Receive Date: 20170504
  Receipt Date: 20170504
  Transmission Date: 20170830
  Serious: Yes (Hospitalization, Other)
  Sender: FDA-Public Use
  Company Number: SI-009507513-1705SVN001920

PATIENT
  Sex: Male
  Weight: 80 kg

DRUGS (10)
  1. KEYTRUDA [Suspect]
     Active Substance: PEMBROLIZUMAB
     Indication: NON-SMALL CELL LUNG CANCER
     Dosage: 200MG/21 DAYS
     Route: 041
     Dates: start: 20170224
  2. NOLPAZA [Concomitant]
     Active Substance: PANTOPRAZOLE SODIUM
     Dosage: 40MG/DAY
     Route: 048
  3. SEVREDOL [Concomitant]
     Active Substance: MORPHINE
     Indication: ANALGESIC THERAPY
     Dosage: MAX 6X10MG/DAY
     Route: 048
  4. BEKUNIS (SENNA) [Concomitant]
     Dosage: UNK
     Route: 048
  5. BERODUAL [Concomitant]
     Active Substance: FENOTEROL HYDROBROMIDE\IPRATROPIUM BROMIDE
     Dosage: UNK
     Route: 055
  6. NALGESIN (NAPROXEN SODIUM) [Concomitant]
     Indication: ANALGESIC THERAPY
     Dosage: 2X550MG/DAY
     Route: 048
  7. OXYCONTIN [Concomitant]
     Active Substance: OXYCODONE HYDROCHLORIDE
     Indication: ANALGESIC THERAPY
     Dosage: 2X10MG/DAY
     Route: 048
  8. FOSTER (BECLOMETHASONE DIPROPIONATE (+) FORMOTEROL FUMARATE) [Concomitant]
     Dosage: 2X2 INH/DAY
     Route: 055
  9. LYRICA [Concomitant]
     Active Substance: PREGABALIN
     Indication: NEURALGIA
     Dosage: 1 DF, BID
     Route: 048
  10. ASPIRIN PROTECT [Concomitant]
     Active Substance: ASPIRIN
     Dosage: 100MG/DAY
     Route: 048

REACTIONS (1)
  - Diabetes mellitus [Recovering/Resolving]

NARRATIVE: CASE EVENT DATE: 20170402
